FAERS Safety Report 22171021 (Version 1)
Quarter: 2023Q2

REPORT INFORMATION
  Report Type: Spontaneous
  Country: US (occurrence: None)
  Receive Date: 20230403
  Receipt Date: 20230403
  Transmission Date: 20230721
  Serious: Yes (Life-Threatening)
  Sender: FDA-Public Use
  Company Number: None

PATIENT
  Age: 53 Year
  Sex: Female

DRUGS (1)
  1. EMGALITY [Suspect]
     Active Substance: GALCANEZUMAB-GNLM
     Indication: Migraine
     Dosage: OTHER QUANTITY : 1 INJECTION(S);?OTHER FREQUENCY : 1 PER MONTH;?
     Route: 030
     Dates: start: 20230401, end: 20230401

REACTIONS (7)
  - Seizure [None]
  - Headache [None]
  - Vision blurred [None]
  - Dizziness [None]
  - Asthenia [None]
  - Troponin increased [None]
  - Tachycardia [None]

NARRATIVE: CASE EVENT DATE: 20230401
